FAERS Safety Report 11150963 (Version 1)
Quarter: 2015Q2

REPORT INFORMATION
  Report Type: Spontaneous
  Country: JP (occurrence: None)
  Receive Date: 20150528
  Receipt Date: 20150528
  Transmission Date: 20150821
  Serious: Yes (Other)
  Sender: FDA-Public Use
  Company Number: 2015-001042

PATIENT
  Age: 64 Year
  Sex: Male

DRUGS (2)
  1. ACTONEL [Suspect]
     Active Substance: RISEDRONATE SODIUM
     Indication: OSTEITIS DEFORMANS
     Route: 048
  2. ASPIRIN (ACETYLSALICYLIC ACID) [Concomitant]
     Active Substance: ASPIRIN

REACTIONS (8)
  - Primary sequestrum [None]
  - Tracheal disorder [None]
  - Osteomyelitis [None]
  - Obstructive airways disorder [None]
  - Dental fistula [None]
  - Hyperplasia [None]
  - Incorrect dose administered [None]
  - Bone deformity [None]
